FAERS Safety Report 9575849 (Version 1)
Quarter: 2013Q4

REPORT INFORMATION
  Report Type: Spontaneous
  Country: US (occurrence: US)
  Receive Date: 20131001
  Receipt Date: 20131001
  Transmission Date: 20140711
  Serious: No
  Sender: FDA-Public Use
  Company Number: US-AMGEN-USASP2012059092

PATIENT
  Age: 76 Year
  Sex: Male
  Weight: 81.18 kg

DRUGS (2)
  1. PROCRIT [Suspect]
     Indication: MYELODYSPLASTIC SYNDROME
     Dosage: 50 UNIT, QWK
     Dates: start: 20120727
  2. PRAVACHOL [Concomitant]
     Indication: BLOOD CHOLESTEROL
     Dosage: 10 MG, UNK
     Route: 048

REACTIONS (3)
  - Palpitations [Not Recovered/Not Resolved]
  - Blood glucose abnormal [Not Recovered/Not Resolved]
  - Anxiety [Not Recovered/Not Resolved]
